FAERS Safety Report 5332256-5 (Version None)
Quarter: 2007Q2

REPORT INFORMATION
  Report Type: 
  Country: None (occurrence: None)
  Receive Date: 20070306
  Receipt Date: 20060520
  Transmission Date: 20071010
  Serious: Yes (Other)
  Sender: FDA-Public Use
  Company Number: A03200603293

PATIENT
  Sex: Male
  Weight: 108.8633 kg

DRUGS (6)
  1. PLAVIX [Suspect]
     Indication: STENT PLACEMENT
     Dosage: 75 MG QD - ORAL
     Route: 048
     Dates: start: 20020101, end: 20020101
  2. PLAVIX [Suspect]
     Indication: STENT PLACEMENT
     Dosage: 75 MG QD - ORAL
     Route: 048
     Dates: start: 20051101
  3. .. [Concomitant]
  4. ACETYLSALICYLIC ACID SRT [Concomitant]
  5. INSULIN [Concomitant]
  6. BLOOD PRESSURE PILLS NOS [Concomitant]

REACTIONS (2)
  - RETINAL HAEMORRHAGE [None]
  - VISUAL ACUITY REDUCED [None]
